FAERS Safety Report 9387868 (Version 1)
Quarter: 2013Q3

REPORT INFORMATION
  Report Type: Spontaneous
  Country: FR (occurrence: FR)
  Receive Date: 20130708
  Receipt Date: 20130708
  Transmission Date: 20140515
  Serious: Yes (Hospitalization)
  Sender: FDA-Public Use
  Company Number: FR-PFIZER INC-2013195069

PATIENT
  Age: 87 Year
  Sex: Female

DRUGS (14)
  1. DALACINE [Suspect]
     Indication: SUPERINFECTION
     Dosage: 600 MG, 2X/DAY
     Route: 048
     Dates: start: 20130429, end: 20130503
  2. CLINDAMYCIN PHOSPHATE [Suspect]
     Indication: SUPERINFECTION
     Dosage: 600 MG, 2X/DAY
     Route: 042
     Dates: start: 20130417, end: 20130429
  3. CIPROFLOXACIN HCL [Suspect]
     Indication: SUPERINFECTION
     Dosage: 400 MG, 1X/DAY
     Route: 042
     Dates: start: 20130417, end: 20130427
  4. CIPROFLOXACIN HCL [Suspect]
     Dosage: 500 MG, 2X/DAY
     Route: 048
     Dates: start: 20130427, end: 20130503
  5. LASILIX [Concomitant]
     Dosage: 40 MG, UNK
     Route: 048
  6. EUPANTOL [Concomitant]
     Dosage: 40 MG, 1X/DAY
     Route: 048
  7. DOLIPRANE [Concomitant]
     Route: 048
  8. KARDEGIC [Concomitant]
     Dosage: 75 MG, 1X/DAY
     Route: 048
  9. NEURONTIN [Concomitant]
     Dosage: 100 MG, 1X/DAY
     Route: 048
  10. OXYNORM [Concomitant]
     Dosage: 10 MG, 1X/DAY
     Route: 048
  11. OXYCONTIN [Concomitant]
     Dosage: 20 MG, 1X/DAY
     Route: 048
  12. ZOLPIDEM [Concomitant]
     Dosage: 10 MG, 1X/DAY
     Route: 048
  13. LOVENOX [Concomitant]
     Dosage: 40 MG, 1X/DAY
     Route: 058
  14. LORAMYC [Concomitant]
     Route: 002

REACTIONS (2)
  - Rash [Not Recovered/Not Resolved]
  - Pyrexia [Recovered/Resolved]
